FAERS Safety Report 17874635 (Version 1)
Quarter: 2020Q2

REPORT INFORMATION
  Report Type: Spontaneous
  Country: GB (occurrence: GB)
  Receive Date: 20200608
  Receipt Date: 20200608
  Transmission Date: 20200714
  Serious: Yes (Death)
  Sender: FDA-Public Use
  Company Number: None

PATIENT
  Sex: Female

DRUGS (12)
  1. PANTOPRAZOLE [Suspect]
     Active Substance: PANTOPRAZOLE
  2. ZOFRAN [Suspect]
     Active Substance: ONDANSETRON HYDROCHLORIDE
  3. MONTELUKAST [Suspect]
     Active Substance: MONTELUKAST SODIUM
  4. OXYCODONE [Suspect]
     Active Substance: OXYCODONE
  5. VENLAFAXINE [Suspect]
     Active Substance: VENLAFAXINE HYDROCHLORIDE
  6. FLONASE ALGY [Concomitant]
  7. MORPHINE SUL [Suspect]
     Active Substance: MORPHINE SULFATE
  8. LORBRENA [Suspect]
     Active Substance: LORLATINIB
     Indication: LUNG CARCINOMA CELL TYPE UNSPECIFIED STAGE 0
     Dosage: ?          OTHER DOSE:1 TAB;?
     Route: 048
     Dates: start: 20191115
  9. PREDNISONE. [Suspect]
     Active Substance: PREDNISONE
  10. ENOXAPARIN [Suspect]
     Active Substance: ENOXAPARIN
  11. NARCAN [Suspect]
     Active Substance: NALOXONE HYDROCHLORIDE
  12. ONDANSETRON [Suspect]
     Active Substance: ONDANSETRON

REACTIONS (1)
  - Death [None]
